FAERS Safety Report 7590918-3 (Version None)
Quarter: 2011Q3

REPORT INFORMATION
  Report Type: 
  Country: None (occurrence: None)
  Receive Date: 20110705
  Receipt Date: 20110627
  Transmission Date: 20111222
  Serious: Yes (Other)
  Sender: FDA-Public Use
  Company Number: PHHY2011JP48926

PATIENT

DRUGS (1)
  1. NEORAL [Suspect]
     Dosage: UNK
     Route: 048

REACTIONS (1)
  - CARDIOMYOPATHY [None]
